FAERS Safety Report 6284181-3 (Version None)
Quarter: 2009Q3

REPORT INFORMATION
  Report Type: 
  Country: None (occurrence: None)
  Receive Date: 20090727
  Receipt Date: 20090716
  Transmission Date: 20100115
  Serious: No
  Sender: FDA-Public Use
  Company Number: US-JNJFOC-20090706169

PATIENT
  Sex: Female

DRUGS (1)
  1. DURAGESIC-100 [Suspect]
     Indication: PAIN
     Dosage: 100 UG/HR + 75 UG/HR
     Route: 062

REACTIONS (8)
  - ABDOMINAL DISTENSION [None]
  - DRUG ADMINISTERED AT INAPPROPRIATE SITE [None]
  - DRUG INEFFECTIVE [None]
  - HYPERHIDROSIS [None]
  - INADEQUATE ANALGESIA [None]
  - INAPPROPRIATE SCHEDULE OF DRUG ADMINISTRATION [None]
  - PRODUCT QUALITY ISSUE [None]
  - SKIN ODOUR ABNORMAL [None]
